FAERS Safety Report 14373535 (Version 2)
Quarter: 2018Q1

REPORT INFORMATION
  Report Type: Spontaneous
  Country: ES (occurrence: ES)
  Receive Date: 20180110
  Receipt Date: 20180122
  Transmission Date: 20180509
  Serious: Yes (Hospitalization, Other)
  Sender: FDA-Public Use
  Company Number: ES-EXELIXIS-CABO-17011806

PATIENT
  Age: 52 Year
  Sex: Female

DRUGS (2)
  1. CABOMETYX [Suspect]
     Active Substance: CABOZANTINIB S-MALATE
     Indication: PRODUCT USED FOR UNKNOWN INDICATION
     Dosage: 60 MG, QD
     Dates: start: 201709
  2. CABOMETYX [Suspect]
     Active Substance: CABOZANTINIB S-MALATE
     Dosage: 40 MG, UNK

REACTIONS (4)
  - Dysphagia [Unknown]
  - Asthenia [Unknown]
  - Gastropleural fistula [Unknown]
  - Bronchitis [Unknown]

NARRATIVE: CASE EVENT DATE: 201712
